FAERS Safety Report 10149991 (Version 1)
Quarter: 2014Q2

REPORT INFORMATION
  Report Type: Spontaneous
  Country: FR (occurrence: FR)
  Receive Date: 20140502
  Receipt Date: 20140502
  Transmission Date: 20141212
  Serious: Yes (Hospitalization)
  Sender: FDA-Public Use
  Company Number: FR-PFIZER INC-2014119910

PATIENT
  Sex: Female

DRUGS (1)
  1. AROMASINE [Suspect]

REACTIONS (2)
  - Fall [Unknown]
  - Humerus fracture [Unknown]
